FAERS Safety Report 5283214-0 (Version None)
Quarter: 2007Q2

REPORT INFORMATION
  Report Type: 
  Country: None (occurrence: None)
  Receive Date: 20070402
  Receipt Date: 20070326
  Transmission Date: 20071010
  Serious: Yes (Life-Threatening, Hospitalization)
  Sender: FDA-Public Use
  Company Number: JP-JPN-A200701038

PATIENT
  Age: 14 Year
  Sex: Male
  Weight: 35 kg

DRUGS (1)
  1. RELENZA [Suspect]
     Indication: INFLUENZA LIKE ILLNESS
     Dosage: 10MG TWICE PER DAY
     Route: 055
     Dates: start: 20070303

REACTIONS (4)
  - DYSPNOEA [None]
  - LARYNGEAL OEDEMA [None]
  - LARYNGEAL STENOSIS [None]
  - PHARYNGOLARYNGEAL PAIN [None]
